FAERS Safety Report 9096316 (Version 1)
Quarter: 2013Q1

REPORT INFORMATION
  Report Type: Spontaneous
  Country: US (occurrence: US)
  Receive Date: 20130207
  Receipt Date: 20130207
  Transmission Date: 20140127
  Serious: Yes (Hospitalization)
  Sender: FDA-Public Use
  Company Number: US-ELI_LILLY_AND_COMPANY-US201301009117

PATIENT
  Sex: Male

DRUGS (23)
  1. FORTEO [Suspect]
     Indication: OSTEOPOROSIS
     Dosage: 20 UG, QD
     Dates: start: 20100322
  2. FORTEO [Suspect]
     Dosage: UNK
  3. TYLENOL                                 /SCH/ [Concomitant]
     Dosage: UNK
  4. IBUPROFEN [Concomitant]
     Dosage: UNK
  5. DOCUSATE [Concomitant]
     Dosage: UNK
  6. PREDNISONE [Concomitant]
     Dosage: UNK
  7. FUROSEMIDE [Concomitant]
     Dosage: UNK
  8. DIOVAN [Concomitant]
     Dosage: UNK
  9. NEXIUM [Concomitant]
     Dosage: UNK
  10. SOTALOL [Concomitant]
     Dosage: UNK
  11. POTASSIUM [Concomitant]
     Dosage: UNK
  12. NITROSTAT [Concomitant]
     Dosage: UNK
  13. MECLIZINE [Concomitant]
     Dosage: UNK
  14. CITRACAL [Concomitant]
     Dosage: UNK
  15. NITROGLYCERIN [Concomitant]
     Dosage: UNK
  16. SUCRALFATE [Concomitant]
     Dosage: UNK
  17. TRAZODONE [Concomitant]
     Dosage: UNK
  18. DUONEB [Concomitant]
     Dosage: UNK
  19. ALBUTEROL SULFATE [Concomitant]
     Dosage: UNK
  20. VITAMIN D [Concomitant]
     Dosage: UNK
  21. BABY ASPIRIN [Concomitant]
     Dosage: UNK
  22. MILK OF MAGNESIA [Concomitant]
     Dosage: UNK
  23. CENTRUM SILVER [Concomitant]
     Dosage: UNK

REACTIONS (1)
  - Lumbar vertebral fracture [Unknown]
